FAERS Safety Report 7551232-5 (Version None)
Quarter: 2011Q2

REPORT INFORMATION
  Report Type: 
  Country: None (occurrence: None)
  Receive Date: 20110616
  Receipt Date: 20110609
  Transmission Date: 20111010
  Serious: Yes (Death)
  Sender: FDA-Public Use
  Company Number: PHHY2011CZ51318

PATIENT
  Sex: Female

DRUGS (3)
  1. ANODYNE [Concomitant]
     Route: 048
  2. ZOMETA [Suspect]
     Dates: start: 20070612
  3. NSAID'S [Concomitant]

REACTIONS (1)
  - DEATH [None]
